FAERS Safety Report 13664135 (Version 1)
Quarter: 2017Q2

REPORT INFORMATION
  Report Type: Spontaneous
  Country: BE (occurrence: BE)
  Receive Date: 20170619
  Receipt Date: 20170619
  Transmission Date: 20170830
  Serious: Yes (Death)
  Sender: FDA-Public Use
  Company Number: BE-PERRIGO-17BE024215

PATIENT
  Age: 4 Year

DRUGS (2)
  1. DOXYLAMINE SUCCINATE. [Suspect]
     Active Substance: DOXYLAMINE SUCCINATE
     Indication: SEDATION
     Dosage: UNKNOWN, UNKNOWN
     Route: 048
  2. HELIUM. [Suspect]
     Active Substance: HELIUM
     Indication: HOMICIDE
     Dosage: UNKNOWN,UNKNOWN
     Route: 055

REACTIONS (1)
  - Overdose [Fatal]
